FAERS Safety Report 8974788 (Version 1)
Quarter: 2012Q4

REPORT INFORMATION
  Report Type: Spontaneous
  Country: US (occurrence: None)
  Receive Date: 20121218
  Receipt Date: 20121218
  Transmission Date: 20130627
  Serious: Yes (Life-Threatening)
  Sender: FDA-Public Use
  Company Number: None

PATIENT
  Age: 55 Year
  Sex: Female
  Weight: 106.14 kg

DRUGS (1)
  1. LATUDA [Suspect]
     Indication: DEPRESSION
     Dosage: 1 pill a day 40 mg every day once a day
     Dates: start: 20111025

REACTIONS (5)
  - Movement disorder [None]
  - Abasia [None]
  - Speech disorder [None]
  - Paralysis [None]
  - Headache [None]
